FAERS Safety Report 4768280-0 (Version None)
Quarter: 2005Q3

REPORT INFORMATION
  Report Type: 
  Country: None (occurrence: None)
  Receive Date: 20050909
  Receipt Date: 20050909
  Transmission Date: 20060218
  Serious: Yes (Other)
  Sender: FDA-Public Use
  Company Number: None

PATIENT
  Sex: Female
  Weight: 74 kg

DRUGS (3)
  1. PACLITAXEL [Suspect]
     Indication: ENDOMETRIAL CANCER
     Dosage: SEE IMAGE
     Route: 042
     Dates: start: 20050726
  2. CARBOPLATIN [Suspect]
     Dosage: SEE IMAGE
     Route: 042
  3. SYNTHROID [Concomitant]

REACTIONS (1)
  - NEUTROPHIL COUNT ABNORMAL [None]
